FAERS Safety Report 7383772 (Version 22)
Quarter: 2015Q2

REPORT INFORMATION
  Report Type: Spontaneous
  Country: US (occurrence: US)
  Receive Date: 20100511
  Receipt Date: 20150605
  Transmission Date: 20150821
  Serious: Yes (Other)
  Sender: FDA-Public Use
  Company Number: PHEH2010US03419

PATIENT
  Sex: Female
  Weight: 63.36 kg

DRUGS (17)
  1. ASPIRIN. [Concomitant]
     Active Substance: ASPIRIN
     Dosage: 81 MG,
  2. ZOMETA [Suspect]
     Active Substance: ZOLEDRONIC ACID
     Indication: BREAST CANCER
  3. ADRIAMYCIN [Concomitant]
     Active Substance: DOXORUBICIN HYDROCHLORIDE
  4. AREDIA [Suspect]
     Active Substance: PAMIDRONATE DISODIUM
     Indication: PRODUCT USED FOR UNKNOWN INDICATION
     Route: 041
  5. ZOMETA [Suspect]
     Active Substance: ZOLEDRONIC ACID
     Indication: METASTASES TO BONE
     Dosage: 4 MG, QMO (MONTHLY)
     Route: 041
     Dates: end: 20080215
  6. FASLODEX [Concomitant]
     Active Substance: FULVESTRANT
     Indication: PRODUCT USED FOR UNKNOWN INDICATION
     Dosage: 500 MG, QMO
     Route: 065
  7. PROVIGIL [Concomitant]
     Active Substance: MODAFINIL
     Dosage: 200 MG, PRN
  8. CALCIUM [Concomitant]
     Active Substance: CALCIUM
  9. 5 FLUORO URACIL [Concomitant]
     Active Substance: FLUOROURACIL
  10. HERCEPTIN [Concomitant]
     Active Substance: TRASTUZUMAB
     Indication: PRODUCT USED FOR UNKNOWN INDICATION
     Route: 065
  11. CYCLOPHOSPHAMIDE. [Concomitant]
     Active Substance: CYCLOPHOSPHAMIDE
  12. ZOMETA [Suspect]
     Active Substance: ZOLEDRONIC ACID
     Indication: OSTEOPOROSIS
  13. SELECTIVE ESTROGEN RECEPTOR MODULATORS [Concomitant]
  14. CELEBREX [Concomitant]
     Active Substance: CELECOXIB
     Indication: PRODUCT USED FOR UNKNOWN INDICATION
     Dosage: 200 MG, QD
     Route: 065
  15. ZOLOFT [Concomitant]
     Active Substance: SERTRALINE HYDROCHLORIDE
     Indication: PRODUCT USED FOR UNKNOWN INDICATION
     Route: 065
  16. COUMADINE [Concomitant]
     Active Substance: WARFARIN SODIUM
     Indication: PRODUCT USED FOR UNKNOWN INDICATION
     Route: 065
  17. FEMARA [Concomitant]
     Active Substance: LETROZOLE
     Indication: PRODUCT USED FOR UNKNOWN INDICATION
     Route: 065

REACTIONS (127)
  - Pulmonary fibrosis [Unknown]
  - Dysuria [Unknown]
  - Haemangioma of liver [Unknown]
  - Hepatic lesion [Unknown]
  - Pulmonary mass [Unknown]
  - Bronchitis [Unknown]
  - Bacterial disease carrier [Unknown]
  - Chest pain [Unknown]
  - Vitamin D deficiency [Unknown]
  - Mitral valve incompetence [Unknown]
  - Diastolic dysfunction [Unknown]
  - Syncope [Unknown]
  - Fatigue [Unknown]
  - Snoring [Unknown]
  - Postural orthostatic tachycardia syndrome [Unknown]
  - Dilatation atrial [Unknown]
  - Skin wound [Unknown]
  - Atrial fibrillation [Unknown]
  - Lethargy [Unknown]
  - Exposed bone in jaw [Unknown]
  - Breast abscess [Unknown]
  - Mouth ulceration [Unknown]
  - Chest discomfort [Unknown]
  - Vertebral foraminal stenosis [Unknown]
  - Bronchospasm [Unknown]
  - Injury [Unknown]
  - Dizziness [Unknown]
  - Stridor [Unknown]
  - Hypertension [Unknown]
  - Chronic obstructive pulmonary disease [Unknown]
  - Disease recurrence [Unknown]
  - Metastases to skin [Unknown]
  - Tooth abscess [Unknown]
  - Back pain [Unknown]
  - Dyspepsia [Unknown]
  - Chills [Unknown]
  - Vomiting [Unknown]
  - Lower respiratory tract infection [Unknown]
  - Bone loss [Unknown]
  - Bone pain [Unknown]
  - Aortic arteriosclerosis [Unknown]
  - Osteosclerosis [Unknown]
  - Primary sequestrum [Unknown]
  - Pain [Unknown]
  - Physical disability [Unknown]
  - Lung infiltration [Unknown]
  - Pleural effusion [Unknown]
  - Sinus disorder [Unknown]
  - Arthralgia [Unknown]
  - Pulmonary valve incompetence [Unknown]
  - Speech disorder [Unknown]
  - Pupillary reflex impaired [Unknown]
  - Ligament disorder [Unknown]
  - Breath odour [Unknown]
  - Upper limb fracture [Unknown]
  - Hepatic cyst [Unknown]
  - Emphysema [Unknown]
  - Intervertebral disc degeneration [Unknown]
  - Excessive granulation tissue [Unknown]
  - Anxiety [Unknown]
  - Stomatitis [Unknown]
  - Rash [Unknown]
  - Constipation [Unknown]
  - Bradycardia [Unknown]
  - Left ventricular hypertrophy [Unknown]
  - Large intestine polyp [Unknown]
  - Presyncope [Unknown]
  - Dysgeusia [Unknown]
  - Road traffic accident [Unknown]
  - Upper respiratory tract infection [Unknown]
  - Splenic calcification [Unknown]
  - Aortic calcification [Unknown]
  - Post inflammatory pigmentation change [Unknown]
  - Overdose [Unknown]
  - Cough [Unknown]
  - Tricuspid valve incompetence [Unknown]
  - Bronchiectasis [Unknown]
  - Hypomagnesaemia [Recovered/Resolved]
  - Tooth fracture [Unknown]
  - Loose tooth [Unknown]
  - Oedema [Unknown]
  - Splenic granuloma [Unknown]
  - Spondylolisthesis [Unknown]
  - Nasal congestion [Unknown]
  - Hyperhidrosis [Unknown]
  - Pallor [Unknown]
  - Nephrolithiasis [Unknown]
  - Granuloma [Unknown]
  - Facet joint syndrome [Unknown]
  - Supraventricular tachycardia [Unknown]
  - Palpitations [Unknown]
  - Insomnia [Unknown]
  - Temperature intolerance [Unknown]
  - Violence-related symptom [Unknown]
  - Nausea [Unknown]
  - Wheezing [Unknown]
  - Osteomyelitis [Unknown]
  - Deformity [Unknown]
  - Tachycardia [Unknown]
  - Bronchial wall thickening [Unknown]
  - Atelectasis [Unknown]
  - Asthma [Unknown]
  - Vitamin D decreased [Unknown]
  - Dyspnoea [Unknown]
  - Gait disturbance [Unknown]
  - Sinus tachycardia [Unknown]
  - Orthostatic hypotension [Unknown]
  - Asthenia [Unknown]
  - Disturbance in attention [Unknown]
  - Abdominal pain [Unknown]
  - Breath sounds abnormal [Unknown]
  - Loss of consciousness [Unknown]
  - Respiratory tract congestion [Unknown]
  - Oesophagitis [Unknown]
  - Spinal osteoarthritis [Unknown]
  - Tooth loss [Unknown]
  - Phlebitis [Unknown]
  - Osteonecrosis of jaw [Unknown]
  - Infection [Unknown]
  - Arrhythmia supraventricular [Unknown]
  - Osteopenia [Unknown]
  - Autonomic nervous system imbalance [Unknown]
  - Dental caries [Unknown]
  - Tinnitus [Unknown]
  - Vulvovaginal dryness [Unknown]
  - Atrioventricular block [Unknown]
  - Chronotropic incompetence [Unknown]
